FAERS Safety Report 7227793-2 (Version None)
Quarter: 2011Q1

REPORT INFORMATION
  Report Type: 
  Country: None (occurrence: None)
  Receive Date: 20110111
  Receipt Date: 20110111
  Transmission Date: 20110831
  Serious: No
  Sender: FDA-Public Use
  Company Number: None

PATIENT
  Age: 56 Year
  Sex: Female
  Weight: 72.5755 kg

DRUGS (1)
  1. EVISTA [Suspect]
     Indication: OSTEOPENIA
     Dosage: 1 PILL ONCE DAILY PO
     Route: 048
     Dates: start: 20061201, end: 20101101

REACTIONS (2)
  - STRESS FRACTURE [None]
  - IMPAIRED HEALING [None]
